FAERS Safety Report 7216332-8 (Version None)
Quarter: 2011Q1

REPORT INFORMATION
  Report Type: 
  Country: None (occurrence: None)
  Receive Date: 20110107
  Receipt Date: 20110103
  Transmission Date: 20110831
  Serious: No
  Sender: FDA-Public Use
  Company Number: US-JNJFOC-20101207655

PATIENT
  Age: 12 Month
  Sex: Male
  Weight: 9.75 kg

DRUGS (2)
  1. INFANTS MYLICON [Suspect]
     Indication: ACCIDENTAL EXPOSURE
     Dosage: 3/4 A BOTTLE
     Route: 048
  2. NATURAL SUPPLEMENTS [Suspect]
     Indication: ACCIDENTAL EXPOSURE

REACTIONS (2)
  - MULTIPLE DRUG OVERDOSE [None]
  - ACCIDENTAL DRUG INTAKE BY CHILD [None]
